FAERS Safety Report 10675919 (Version 2)
Quarter: 2015Q1

REPORT INFORMATION
  Report Type: Report from Study
  Country: GB (occurrence: GB)
  Receive Date: 20141225
  Receipt Date: 20150113
  Transmission Date: 20150720
  Serious: Yes (Hospitalization)
  Sender: FDA-Public Use
  Company Number: GB-AMGEN-GBRCT2014099528

PATIENT
  Age: 43 Year
  Sex: Male

DRUGS (6)
  1. FLUCLOXACILLIN [Concomitant]
     Active Substance: FLUCLOXACILLIN
     Dosage: 1 G, ONE TIME DOSE
     Route: 042
     Dates: start: 20141217, end: 20141217
  2. DENOSUMAB [Suspect]
     Active Substance: DENOSUMAB
     Indication: BONE GIANT CELL TUMOUR
     Dosage: 120 MG, Q4WK
     Route: 058
     Dates: start: 20111109
  3. FENTANYL. [Concomitant]
     Active Substance: FENTANYL
     Dosage: 100 MG, ONE TIME DOSE
     Route: 042
     Dates: start: 20141217, end: 20141217
  4. GENTAMYCIN                         /00047101/ [Concomitant]
     Active Substance: GENTAMICIN
     Dosage: 120 MG, ONE TIME DOSE
     Route: 042
     Dates: start: 20141217, end: 20141217
  5. ONDANSETRON [Concomitant]
     Active Substance: ONDANSETRON
     Dosage: 4 MG, ONE TIME DOSE
     Route: 042
     Dates: start: 20141217, end: 20141217
  6. PROPOFOL. [Concomitant]
     Active Substance: PROPOFOL
     Dosage: 200 MG, ONE TIME DOSE
     Route: 042
     Dates: start: 20141217, end: 20141217

REACTIONS (2)
  - Bone giant cell tumour [Recovered/Resolved]
  - Debridement [Recovered/Resolved]

NARRATIVE: CASE EVENT DATE: 20141121
